FAERS Safety Report 19877990 (Version 1)
Quarter: 2021Q3

REPORT INFORMATION
  Report Type: Report from Study
  Country: IN (occurrence: IN)
  Receive Date: 20210923
  Receipt Date: 20210923
  Transmission Date: 20211014
  Serious: Yes (Hospitalization)
  Sender: FDA-Public Use
  Company Number: IN-EISAI MEDICAL RESEARCH-EC-2021-099998

PATIENT
  Age: 48 Year
  Sex: Male

DRUGS (2)
  1. LENVIMA [Suspect]
     Active Substance: LENVATINIB
     Indication: HEPATOCELLULAR CARCINOMA
     Route: 048
     Dates: start: 20210720, end: 20210726
  2. LENVIMA [Suspect]
     Active Substance: LENVATINIB
     Route: 048
     Dates: start: 20210806

REACTIONS (2)
  - Diarrhoea [Recovered/Resolved]
  - Intra-abdominal fluid collection [Unknown]

NARRATIVE: CASE EVENT DATE: 202107
